FAERS Safety Report 7569421-2 (Version None)
Quarter: 2011Q2

REPORT INFORMATION
  Report Type: 
  Country: None (occurrence: None)
  Receive Date: 20110624
  Receipt Date: 20110616
  Transmission Date: 20111010
  Serious: Yes (Hospitalization)
  Sender: FDA-Public Use
  Company Number: US-BRISTOL-MYERS SQUIBB COMPANY-15554165

PATIENT
  Age: 59 Year
  Sex: Male

DRUGS (13)
  1. METOPROLOL TARTRATE [Concomitant]
  2. CALCIUM CARBONATE [Concomitant]
     Dosage: RECENTLY STARTED
  3. AVAPRO [Concomitant]
  4. LIPITOR [Concomitant]
  5. PREDNISONE [Concomitant]
  6. AMBIEN [Concomitant]
     Indication: SLEEP DISORDER
  7. ZOFRAN [Concomitant]
  8. POTASSIUM CHLORIDE [Concomitant]
  9. VITAMIN D [Concomitant]
     Dosage: RECENTLY STARTED
  10. PERCOCET [Concomitant]
  11. IPILIMUMAB [Suspect]
     Indication: MALIGNANT MELANOMA
     Dosage: 07OCT10,28OCT10;188MG,LAST DOSE 188MG ON 18NOV11
     Route: 042
     Dates: start: 20100916
  12. KEPPRA [Concomitant]
  13. NEXIUM [Concomitant]

REACTIONS (1)
  - SMALL INTESTINAL OBSTRUCTION [None]
